FAERS Safety Report 12179200 (Version 1)
Quarter: 2016Q1

REPORT INFORMATION
  Report Type: Spontaneous
  Country: US (occurrence: None)
  Receive Date: 20160314
  Receipt Date: 20160314
  Transmission Date: 20160526
  Serious: Yes (Other)
  Sender: FDA-Public Use
  Company Number: None

PATIENT
  Age: 54 Year
  Sex: Female
  Weight: 94.8 kg

DRUGS (15)
  1. GARLISE [Concomitant]
  2. ALLOPURINOL. [Concomitant]
     Active Substance: ALLOPURINOL
  3. METFORMIN [Concomitant]
     Active Substance: METFORMIN HYDROCHLORIDE
  4. ETODOLAC. [Concomitant]
     Active Substance: ETODOLAC
  5. CYMBALTA [Concomitant]
     Active Substance: DULOXETINE HYDROCHLORIDE
  6. WELCHOL [Concomitant]
     Active Substance: COLESEVELAM HYDROCHLORIDE
  7. ZETIA [Concomitant]
     Active Substance: EZETIMIBE
  8. MAGNESIUM [Concomitant]
     Active Substance: MAGNESIUM
  9. ZOHYDRO [Suspect]
     Active Substance: HYDROCODONE BITARTRATE
     Indication: LIVER DISORDER
     Dosage: 1 TWICE DAILY TAKEN BY MOUTH
     Route: 048
     Dates: start: 20160311, end: 20160312
  10. COLCRYS [Concomitant]
     Active Substance: COLCHICINE
  11. LISINOPRIL. [Concomitant]
     Active Substance: LISINOPRIL
  12. POTASSIUM [Concomitant]
     Active Substance: POTASSIUM
  13. ATENOLOL. [Concomitant]
     Active Substance: ATENOLOL
  14. LIPITOR [Concomitant]
     Active Substance: ATORVASTATIN CALCIUM
  15. ALLEGRA [Concomitant]
     Active Substance: FEXOFENADINE HYDROCHLORIDE

REACTIONS (6)
  - Oxygen saturation decreased [None]
  - Hyperhidrosis [None]
  - Diarrhoea [None]
  - Asthenia [None]
  - Nausea [None]
  - Heart rate decreased [None]

NARRATIVE: CASE EVENT DATE: 20160312
